FAERS Safety Report 7232339-9 (Version None)
Quarter: 2011Q1

REPORT INFORMATION
  Report Type: 
  Country: None (occurrence: None)
  Receive Date: 20110106
  Receipt Date: 20101223
  Transmission Date: 20110831
  Serious: Yes (Hospitalization, Other)
  Sender: FDA-Public Use
  Company Number: JHP201000378

PATIENT
  Age: 41 Year
  Sex: Female

DRUGS (6)
  1. EPINEPHRINE [Suspect]
     Indication: ASTHMA
     Dosage: 0.5 MG, SIGNLE, INRAMUSCULAR
     Route: 030
  2. OXYGEN (OXYGEN) [Concomitant]
  3. MONTELUKAST (MONTELUKAST SODIUM) [Concomitant]
  4. IPRATROPIUM (IPRATROPIUM BROMIDE) [Concomitant]
  5. SYMBICORT [Concomitant]
  6. SALBUTAMIL (SALBUTAMOL SULFATE) [Concomitant]

REACTIONS (2)
  - LEUKOCYTOSIS [None]
  - ASTHMA [None]
